FAERS Safety Report 7961439-0 (Version None)
Quarter: 2011Q4

REPORT INFORMATION
  Report Type: 
  Country: None (occurrence: None)
  Receive Date: 20111121
  Receipt Date: 20110926
  Transmission Date: 20120403
  Serious: No
  Sender: FDA-Public Use
  Company Number: 1000024275

PATIENT
  Age: 59 Year
  Sex: Female

DRUGS (9)
  1. PRIMIDONE (PRIMIDONE) (PRIMIDONE) [Concomitant]
  2. VIIBRYD [Suspect]
     Indication: MAJOR DEPRESSION
     Dosage: 10 MG (10 MG,1 IN 1 D),ORAL ; 20 MG (20 MG,1 IN 1 D),ORAL ; 40 MG (40 MG,1 IN 1 D),ORAL
     Route: 048
     Dates: start: 20110914, end: 20110918
  3. VIIBRYD [Suspect]
     Indication: MAJOR DEPRESSION
     Dosage: 10 MG (10 MG,1 IN 1 D),ORAL ; 20 MG (20 MG,1 IN 1 D),ORAL ; 40 MG (40 MG,1 IN 1 D),ORAL
     Route: 048
     Dates: start: 20110919, end: 20110924
  4. VIIBRYD [Suspect]
     Indication: MAJOR DEPRESSION
     Dosage: 10 MG (10 MG,1 IN 1 D),ORAL ; 20 MG (20 MG,1 IN 1 D),ORAL ; 40 MG (40 MG,1 IN 1 D),ORAL
     Route: 048
     Dates: start: 20110909, end: 20110913
  5. STRATTERA (ATOMOXETINE HYDROCHLORIDE) (ATOMOXETINE HYDROCHLORIDE) [Concomitant]
  6. KLONOPIN [Concomitant]
  7. LAMICTAL [Concomitant]
  8. SYNTHROID (LEVOTHYROXINE SODIUM) (LEVOTHYROXINE SODIUM) [Concomitant]
  9. IBUPROFEN [Concomitant]

REACTIONS (5)
  - INSOMNIA [None]
  - CONSTIPATION [None]
  - HEADACHE [None]
  - PAIN IN EXTREMITY [None]
  - MANIA [None]
